FAERS Safety Report 4981243-5 (Version None)
Quarter: 2006Q2

REPORT INFORMATION
  Report Type: 
  Country: None (occurrence: None)
  Receive Date: 20060418
  Receipt Date: 20060407
  Transmission Date: 20061013
  Serious: Yes (Death)
  Sender: FDA-Public Use
  Company Number: S06-USA-01154-01

PATIENT
  Age: 21 Year
  Sex: Female
  Weight: 68.4932 kg

DRUGS (9)
  1. CELEXA [Suspect]
     Indication: DEPRESSION
     Dosage: 60 MG QD PO
     Route: 048
     Dates: start: 20030204, end: 20031201
  2. CELEXA [Suspect]
     Indication: DEPRESSION
     Dosage: 10 MG QD PO
     Route: 048
     Dates: start: 20021113, end: 20021115
  3. CELEXA [Suspect]
     Indication: DEPRESSION
     Dosage: 20 MG QD PO
     Route: 048
     Dates: start: 20021116, end: 20021201
  4. CELEXA [Suspect]
     Indication: DEPRESSION
     Dosage: 20 MG QD PO
     Route: 048
     Dates: start: 20021201, end: 20030106
  5. CELEXA [Suspect]
     Indication: DEPRESSION
     Dosage: 40 MG QD PO
     Route: 048
     Dates: start: 20030107, end: 20030203
  6. CELEXA [Suspect]
     Indication: DEPRESSION
     Dosage: 60 MG QD PO
     Route: 048
     Dates: start: 20040205, end: 20040308
  7. CELEXA [Suspect]
     Indication: DEPRESSION
     Dosage: 60 MG QHS PO
     Route: 048
     Dates: start: 20040314, end: 20040314
  8. CELEXA [Suspect]
     Indication: DEPRESSION
     Dosage: 60 MG ONCE PO
     Route: 048
     Dates: start: 20040315, end: 20040315
  9. TRAZODONE HCL [Concomitant]

REACTIONS (6)
  - COMPLETED SUICIDE [None]
  - INFLUENZA [None]
  - INTENTIONAL SELF-INJURY [None]
  - MALAISE [None]
  - OVERDOSE [None]
  - TREATMENT NONCOMPLIANCE [None]
